FAERS Safety Report 22618000 (Version 2)
Quarter: 2024Q3

REPORT INFORMATION
  Report Type: Spontaneous
  Country: US (occurrence: US)
  Receive Date: 20230620
  Receipt Date: 20240711
  Transmission Date: 20241017
  Serious: No
  Sender: PIERRE FABRE MEDICAMENT
  Company Number: US-PFM-2022-06894

PATIENT
  Sex: Female
  Weight: 12.698 kg

DRUGS (2)
  1. HEMANGEOL [Suspect]
     Active Substance: PROPRANOLOL HYDROCHLORIDE
     Indication: Haemangioma
     Dosage: 1.5 ML, BID (2/DAY) FOR 2 WEEKS
     Route: 048
  2. HEMANGEOL [Suspect]
     Active Substance: PROPRANOLOL HYDROCHLORIDE
     Dosage: 2.25 MG, BID (2/DAY), FOR MAINTENANCE DOSING
     Route: 048

REACTIONS (3)
  - Pain [Unknown]
  - Product administered to patient of inappropriate age [Unknown]
  - Off label use [Unknown]
